FAERS Safety Report 4539936-X (Version None)
Quarter: 2004Q4

REPORT INFORMATION
  Report Type: 
  Country: None (occurrence: None)
  Receive Date: 20041223
  Receipt Date: 20041214
  Transmission Date: 20050328
  Serious: Yes (Disabling)
  Sender: FDA-Public Use
  Company Number: 200311555GDS

PATIENT
  Age: 77 Year
  Sex: Female

DRUGS (8)
  1. MOXIFLOXACIN HCL [Suspect]
     Indication: PNEUMONIA
     Dosage: 400 MG, TOTAL DAILY, ORAL
     Route: 048
     Dates: start: 20020213, end: 20020223
  2. LIPLAT [Concomitant]
  3. ADIRO [Concomitant]
  4. TENORMIN [Concomitant]
  5. ACOVIL [Concomitant]
  6. ORFIDAL [Concomitant]
  7. ATROPINE [Concomitant]
  8. MAXIDEXCOLIRIUM [Concomitant]

REACTIONS (3)
  - IRIDOCYCLITIS [None]
  - MYDRIASIS [None]
  - PIGMENT DISPERSION SYNDROME [None]
